FAERS Safety Report 20608350 (Version 2)
Quarter: 2022Q2

REPORT INFORMATION
  Report Type: Spontaneous
  Country: US (occurrence: US)
  Receive Date: 20220317
  Receipt Date: 20220413
  Transmission Date: 20220721
  Serious: No
  Sender: FDA-Public Use
  Company Number: US-PFIZER INC-202200411897

PATIENT
  Sex: Female

DRUGS (2)
  1. PREGABALIN [Suspect]
     Active Substance: PREGABALIN
     Indication: Pain
     Dosage: UNK
     Dates: end: 20220309
  2. PREGABALIN [Suspect]
     Active Substance: PREGABALIN
     Indication: Pancreatitis chronic

REACTIONS (2)
  - Drug ineffective [Unknown]
  - Pruritus [Unknown]
